FAERS Safety Report 11435175 (Version 1)
Quarter: 2015Q3

REPORT INFORMATION
  Report Type: Spontaneous
  Country: BR (occurrence: BR)
  Receive Date: 20150831
  Receipt Date: 20150831
  Transmission Date: 20151125
  Serious: Yes (Hospitalization)
  Sender: FDA-Public Use
  Company Number: BR-PFIZER INC-2013198858

PATIENT
  Age: 73 Year
  Sex: Male
  Weight: 78 kg

DRUGS (4)
  1. SUTENT [Suspect]
     Active Substance: SUNITINIB MALATE
     Indication: METASTATIC RENAL CELL CARCINOMA
     Dosage: 50 MG, 1X/DAY (ONE CAPSULE, ONCE A DAY), CYCLE 4X2
     Route: 048
     Dates: start: 20130612
  2. LOSARTAN. [Concomitant]
     Active Substance: LOSARTAN
     Dosage: 50MG 1 TABLET PER DAY
  3. CALCIUM [Concomitant]
     Active Substance: CALCIUM
     Indication: BONE DISORDER
  4. HYDROCHLOROTHIAZIDE. [Concomitant]
     Active Substance: HYDROCHLOROTHIAZIDE
     Dosage: 25MG 1 TABLET PER DAY

REACTIONS (12)
  - Peripheral swelling [Unknown]
  - Platelet count decreased [Unknown]
  - Abdominal pain [Unknown]
  - Secretion discharge [Unknown]
  - Bacterial infection [Unknown]
  - Erythema [Recovering/Resolving]
  - Necrosis [Unknown]
  - Toe amputation [Unknown]
  - Peripheral venous disease [Unknown]
  - Wound [Not Recovered/Not Resolved]
  - Inflammation [Recovering/Resolving]
  - Hyperkeratosis [Unknown]

NARRATIVE: CASE EVENT DATE: 2013
